FAERS Safety Report 25377074 (Version 4)
Quarter: 2025Q3

REPORT INFORMATION
  Report Type: Spontaneous
  Country: CN (occurrence: CN)
  Receive Date: 20250530
  Receipt Date: 20250822
  Transmission Date: 20251021
  Serious: Yes (Hospitalization, Other)
  Sender: RANBAXY
  Company Number: CN-SUN PHARMACEUTICAL INDUSTRIES LTD-2025R1-509910

PATIENT
  Age: 71 Year
  Sex: Male

DRUGS (1)
  1. SONIDEGIB [Suspect]
     Active Substance: SONIDEGIB
     Indication: Basal cell carcinoma
     Dosage: 1 CAPSULE, QD
     Route: 048
     Dates: start: 202409, end: 202503

REACTIONS (17)
  - Hepatic function abnormal [Unknown]
  - Blood creatine phosphokinase increased [Recovered/Resolved]
  - Autoimmune enteropathy [Recovering/Resolving]
  - Colitis ulcerative [Recovering/Resolving]
  - Joint swelling [Recovered/Resolved]
  - Arthropathy [Recovered/Resolved]
  - Erythema [Recovered/Resolved]
  - Drug ineffective [Unknown]
  - Decreased appetite [Unknown]
  - Hypokalaemia [Unknown]
  - Taste disorder [Unknown]
  - Anaemia [Unknown]
  - Pulmonary mass [Unknown]
  - Hypoproteinaemia [Unknown]
  - Supraventricular extrasystoles [Unknown]
  - Arteriosclerosis [Unknown]
  - Synovial cyst [Unknown]

NARRATIVE: CASE EVENT DATE: 20241001
